FAERS Safety Report 4280205-3 (Version None)
Quarter: 2004Q1

REPORT INFORMATION
  Report Type: 
  Country: None (occurrence: None)
  Receive Date: 20040128
  Receipt Date: 20040122
  Transmission Date: 20041129
  Serious: Yes (Hospitalization)
  Sender: FDA-Public Use
  Company Number: FR-GLAXOSMITHKLINE-B0320791A

PATIENT
  Age: 59 Year
  Sex: Female
  Weight: 87 kg

DRUGS (5)
  1. AUGMENTIN [Suspect]
     Indication: PYREXIA
     Route: 048
     Dates: start: 20031206, end: 20031208
  2. VALPROATE SODIUM [Suspect]
     Indication: CONVULSION
     Route: 048
     Dates: start: 20031205, end: 20031216
  3. GARDENAL [Suspect]
     Indication: CONVULSION
     Route: 048
     Dates: start: 20031123, end: 20031205
  4. PRODILANTIN [Concomitant]
     Indication: CONVULSION
     Route: 065
  5. RIVOTRIL [Concomitant]
     Indication: CONVULSION
     Route: 065

REACTIONS (7)
  - DERMATITIS EXFOLIATIVE [None]
  - EOSINOPHILIA [None]
  - GENERALISED OEDEMA [None]
  - PYREXIA [None]
  - SKIN DESQUAMATION [None]
  - TOXIC SKIN ERUPTION [None]
  - URINARY TRACT INFECTION [None]
